FAERS Safety Report 5556754-4 (Version None)
Quarter: 2007Q4

REPORT INFORMATION
  Report Type: 
  Country: None (occurrence: None)
  Receive Date: 20071128
  Receipt Date: 20070924
  Transmission Date: 20080405
  Serious: Yes (Hospitalization)
  Sender: FDA-Public Use
  Company Number: CIP07001841

PATIENT
  Sex: Female

DRUGS (3)
  1. ACTONEL [Suspect]
     Indication: OSTEOPENIA
     Dosage: 35 MG ONCE A WEEK, ORAL
     Route: 048
     Dates: start: 20020101, end: 20061201
  2. ZETIA [Concomitant]
  3. DRUG NOS [Concomitant]

REACTIONS (3)
  - FALL [None]
  - HIP FRACTURE [None]
  - MYALGIA [None]
